FAERS Safety Report 11313081 (Version 1)
Quarter: 2015Q3

REPORT INFORMATION
  Report Type: Spontaneous
  Country: US (occurrence: None)
  Receive Date: 20150724
  Receipt Date: 20150724
  Transmission Date: 20151125
  Serious: No
  Sender: FDA-Public Use
  Company Number: None

PATIENT
  Age: 63 Year
  Sex: Male

DRUGS (4)
  1. SILDENAFIL (REVATIO) [Concomitant]
  2. CYCLOBENZAPRINE (FLEXERIL) [Concomitant]
  3. AMPYRA [Suspect]
     Active Substance: DALFAMPRIDINE
     Indication: MULTIPLE SCLEROSIS
     Route: 048
     Dates: start: 201403
  4. TERAZOSIN (HYTRIN) [Concomitant]

REACTIONS (4)
  - Urinary incontinence [None]
  - Urine flow decreased [None]
  - Protein urine [None]
  - Urinary hesitation [None]

NARRATIVE: CASE EVENT DATE: 20150715
